FAERS Safety Report 8244823-X (Version None)
Quarter: 2012Q1

REPORT INFORMATION
  Report Type: 
  Country: None (occurrence: None)
  Receive Date: 20120329
  Receipt Date: 20110523
  Transmission Date: 20120608
  Serious: No
  Sender: FDA-Public Use
  Company Number: US-MYLANLABS-2011S1010593

PATIENT
  Age: 75 Year
  Sex: Male

DRUGS (2)
  1. FENTANYL-100 [Suspect]
     Indication: RHEUMATOID ARTHRITIS
     Dosage: CHANGED Q48H
     Route: 062
     Dates: start: 20100501
  2. FENTANYL-100 [Suspect]
     Dosage: Q48HR
     Route: 062
     Dates: start: 20110101, end: 20110101

REACTIONS (3)
  - HYPERSOMNIA [None]
  - HYPERHIDROSIS [None]
  - DECREASED APPETITE [None]
